FAERS Safety Report 9685688 (Version 5)
Quarter: 2014Q2

REPORT INFORMATION
  Report Type: Spontaneous
  Country: US (occurrence: US)
  Receive Date: 20131113
  Receipt Date: 20140429
  Transmission Date: 20141212
  Serious: Yes (Hospitalization)
  Sender: FDA-Public Use
  Company Number: US-PFIZER INC-2013319884

PATIENT
  Age: 57 Year
  Sex: Female

DRUGS (3)
  1. INLYTA [Suspect]
     Indication: RENAL CANCER
     Dosage: 5 MG, 2X/DAY (BID)
     Dates: start: 20130928
  2. INLYTA [Suspect]
     Dosage: 5 MG, UNK
     Dates: start: 20131004
  3. INLYTA [Suspect]
     Dosage: 5 MG, 2X/DAY (BID)
     Route: 048
     Dates: start: 20131005

REACTIONS (4)
  - Pneumonia [Unknown]
  - Hypertension [Unknown]
  - Fatigue [Unknown]
  - Nausea [Unknown]
